FAERS Safety Report 5871734-7 (Version None)
Quarter: 2008Q3

REPORT INFORMATION
  Report Type: 
  Country: None (occurrence: None)
  Receive Date: 20080904
  Receipt Date: 20080904
  Transmission Date: 20090109
  Serious: No
  Sender: FDA-Public Use
  Company Number: None

PATIENT
  Age: 56 Year
  Sex: Female
  Weight: 70.3075 kg

DRUGS (1)
  1. NAPROXEN [Suspect]
     Indication: ARTHRITIS
     Dosage: ONE TABLET TWO X DAY PO
     Route: 048
     Dates: start: 20080813, end: 20080823

REACTIONS (10)
  - ARTHRALGIA [None]
  - CHILLS [None]
  - GRIP STRENGTH DECREASED [None]
  - INFLUENZA LIKE ILLNESS [None]
  - JOINT SWELLING [None]
  - NUCHAL RIGIDITY [None]
  - OEDEMA PERIPHERAL [None]
  - PYREXIA [None]
  - TINNITUS [None]
  - VISION BLURRED [None]
